FAERS Safety Report 6422170-6 (Version None)
Quarter: 2009Q4

REPORT INFORMATION
  Report Type: 
  Country: None (occurrence: None)
  Receive Date: 20091030
  Receipt Date: 20091019
  Transmission Date: 20100525
  Serious: Yes (Hospitalization)
  Sender: FDA-Public Use
  Company Number: PHHY2009FR45480

PATIENT
  Age: 83 Year
  Sex: Male

DRUGS (8)
  1. ACLASTA [Suspect]
     Indication: OSTEITIS DEFORMANS
     Dosage: UNK
     Route: 042
     Dates: start: 20080501
  2. AVANDAMET [Concomitant]
     Indication: DIABETES MELLITUS
     Dosage: UNK
  3. ZYLORIC [Concomitant]
  4. FLUDEX [Concomitant]
  5. CORDARONE [Concomitant]
  6. PLAVIX [Concomitant]
  7. HEXAQUINE [Concomitant]
  8. VITAMIN D [Concomitant]
     Indication: DIARRHOEA
     Route: 048

REACTIONS (3)
  - BRADYCARDIA [None]
  - CARDIAC PACEMAKER INSERTION [None]
  - VITAMIN D DECREASED [None]
